FAERS Safety Report 9163584 (Version 1)
Quarter: 2013Q1

REPORT INFORMATION
  Report Type: Spontaneous
  Country: US (occurrence: US)
  Receive Date: 20130314
  Receipt Date: 20130314
  Transmission Date: 20140127
  Serious: No
  Sender: FDA-Public Use
  Company Number: US-PFIZER INC-2013082122

PATIENT
  Sex: Male

DRUGS (3)
  1. ADVIL [Suspect]
     Dosage: UNK
  2. MUCINEX DM [Concomitant]
     Dosage: UNK
  3. AZELASTINE [Concomitant]
     Dosage: UNK

REACTIONS (2)
  - Pallor [Unknown]
  - Malaise [Unknown]
